FAERS Safety Report 4415190-4 (Version None)
Quarter: 2004Q3

REPORT INFORMATION
  Report Type: 
  Country: None (occurrence: None)
  Receive Date: 20040729
  Receipt Date: 20040716
  Transmission Date: 20050211
  Serious: Yes (Death, Hospitalization, Other)
  Sender: FDA-Public Use
  Company Number: 2004048530

PATIENT
  Age: 37 Year
  Sex: Male

DRUGS (6)
  1. VFEND [Suspect]
     Indication: PROPHYLAXIS
     Dosage: 400 MG, (200 MG, 2 IN 1 D), ORAL
     Route: 048
     Dates: start: 20040501
  2. TACROLIMUS (TACROLIMUS) [Suspect]
     Indication: GRAFT VERSUS HOST DISEASE
  3. TACROLIMUS (TACROLIMUS) [Suspect]
     Indication: PROPHYLAXIS
  4. DIFLUCAN [Suspect]
     Indication: ILL-DEFINED DISORDER
  5. MYCOPHENOLATE MOFETIL (MYCOPHENOLATE MOFETIL) [Concomitant]
  6. ALL OTHER THERAPEUTIC PRODUCTS (ALL OTHER THERAPEUTIC PRODUCTS) [Concomitant]

REACTIONS (5)
  - CEREBROVASCULAR ACCIDENT [None]
  - DRUG LEVEL INCREASED [None]
  - PARALYSIS [None]
  - RESPIRATORY DISORDER [None]
  - THROMBOTIC THROMBOCYTOPENIC PURPURA [None]
